FAERS Safety Report 6958364-0 (Version None)
Quarter: 2010Q3

REPORT INFORMATION
  Report Type: 
  Country: None (occurrence: None)
  Receive Date: 20100831
  Receipt Date: 20100818
  Transmission Date: 20110219
  Serious: Yes (Hospitalization)
  Sender: FDA-Public Use
  Company Number: SE-ROCHE-632045

PATIENT
  Sex: Female
  Weight: 67 kg

DRUGS (29)
  1. MYCOPHENOLATE MOFETIL [Suspect]
     Indication: ANTI-NEUTROPHIL CYTOPLASMIC ANTIBODY POSITIVE VASCULITIS
     Dosage: DOSE: 750 MGX2
     Route: 065
     Dates: start: 20090204
  2. MYCOPHENOLATE MOFETIL [Suspect]
     Route: 065
     Dates: start: 20090303
  3. AZA [Suspect]
     Indication: PRODUCT USED FOR UNKNOWN INDICATION
     Route: 065
     Dates: start: 20090522
  4. SODIUM BICARBONATE [Concomitant]
  5. OMEPRAZOLE [Concomitant]
  6. METOCLOPRAMIDE [Concomitant]
  7. METOCLOPRAMIDE [Concomitant]
  8. FUROSEMIDE [Concomitant]
  9. FUROSEMIDE [Concomitant]
  10. METOPROLOL TARTRATE [Concomitant]
  11. METOPROLOL TARTRATE [Concomitant]
  12. AMLODIPINE [Concomitant]
  13. ENALAPRIL MALEATE [Concomitant]
  14. PREDNISOLONE [Concomitant]
  15. AZATIOPRIN [Concomitant]
  16. ETALPHA [Concomitant]
  17. PREDNISONE [Concomitant]
  18. PREDNISONE [Concomitant]
  19. VENOFER [Concomitant]
  20. ARANESP [Concomitant]
  21. ARANESP [Concomitant]
  22. AMINESS [Concomitant]
     Dosage: TDD REPORTED AS 4/DAY.
  23. LOPERAMIDE [Concomitant]
  24. METOCLOPRAMID [Concomitant]
  25. SODIUM CARBONATE [Concomitant]
  26. ORALOVITE [Concomitant]
     Dosage: DOSE REPORTED AS:1X2
  27. RENAGEL [Concomitant]
  28. ACETYLCYSTEINE [Concomitant]
  29. STILNOCT [Concomitant]
     Dosage: FREQUENCY: EVERY NIGHT

REACTIONS (7)
  - ARTERIOVENOUS FISTULA OPERATION [None]
  - AZOTAEMIA [None]
  - BLOOD CREATININE INCREASED [None]
  - DIARRHOEA [None]
  - HERPES SIMPLEX [None]
  - NAUSEA [None]
  - RENAL IMPAIRMENT [None]
